FAERS Safety Report 4896937-X (Version None)
Quarter: 2006Q1

REPORT INFORMATION
  Report Type: 
  Country: None (occurrence: None)
  Receive Date: 20060127
  Receipt Date: 20060113
  Transmission Date: 20060701
  Serious: Yes (Other)
  Sender: FDA-Public Use
  Company Number: FR200601002021

PATIENT
  Age: 43 Year
  Sex: Male

DRUGS (1)
  1. XIGRIS [Suspect]
     Indication: SEPSIS
     Dosage: 24 UG/KG/HR, DAILY (1/D), SUBCUTANEOUS
     Route: 058
     Dates: start: 20060111

REACTIONS (1)
  - THROMBOCYTOPENIA [None]
